FAERS Safety Report 12977647 (Version 1)
Quarter: 2016Q4

REPORT INFORMATION
  Report Type: Spontaneous
  Country: US (occurrence: US)
  Receive Date: 20161125
  Receipt Date: 20161125
  Transmission Date: 20170207
  Serious: Yes (Hospitalization)
  Sender: FDA-Public Use
  Company Number: None

PATIENT
  Age: 43 Year
  Sex: Female
  Weight: 148 kg

DRUGS (1)
  1. AZITHROMYCIN ANHYDROUS. [Suspect]
     Active Substance: AZITHROMYCIN ANHYDROUS
     Indication: ATYPICAL PNEUMONIA
     Route: 048
     Dates: start: 20161109, end: 20161117

REACTIONS (3)
  - Ventricular tachycardia [None]
  - Ventricular extrasystoles [None]
  - Dizziness [None]

NARRATIVE: CASE EVENT DATE: 20161118
